FAERS Safety Report 4611039-5 (Version None)
Quarter: 2005Q1

REPORT INFORMATION
  Report Type: 
  Country: None (occurrence: None)
  Receive Date: 20050317
  Receipt Date: 20040603
  Transmission Date: 20050727
  Serious: Yes (Death)
  Sender: FDA-Public Use
  Company Number: 200415656GDDC

PATIENT
  Age: 74 Year
  Sex: Female

DRUGS (7)
  1. CLEXANE [Suspect]
     Indication: POST PROCEDURAL COMPLICATION
     Route: 058
     Dates: start: 20040515, end: 20040524
  2. CLEXANE [Suspect]
     Indication: THROMBOSIS
     Route: 058
     Dates: start: 20040515, end: 20040524
  3. FUROSEMIDE [Concomitant]
  4. SIMVASTATIN [Concomitant]
  5. SOTALOL HCL [Concomitant]
  6. ASPIRIN [Concomitant]
  7. OMEPRAZOLE [Concomitant]

REACTIONS (5)
  - ABDOMINAL PAIN [None]
  - GASTROINTESTINAL HAEMORRHAGE [None]
  - HAEMOGLOBIN DECREASED [None]
  - POST PROCEDURAL HAEMATOMA [None]
  - RETROPERITONEAL HAEMORRHAGE [None]
